FAERS Safety Report 20461286 (Version 1)
Quarter: 2022Q1

REPORT INFORMATION
  Report Type: Spontaneous
  Country: FR (occurrence: FR)
  Receive Date: 20220211
  Receipt Date: 20220211
  Transmission Date: 20220423
  Serious: Yes (Other)
  Sender: FDA-Public Use
  Company Number: None

PATIENT
  Age: 57 Year
  Sex: Female
  Weight: 56 kg

DRUGS (3)
  1. ETHINYL ESTRADIOL\LEVONORGESTREL [Suspect]
     Active Substance: ETHINYL ESTRADIOL\LEVONORGESTREL
     Route: 048
  2. ETHINYL ESTRADIOL\LEVONORGESTREL [Suspect]
     Active Substance: ETHINYL ESTRADIOL\LEVONORGESTREL
     Route: 048
  3. MIRENA [Suspect]
     Active Substance: LEVONORGESTREL
     Indication: Intrauterine contraception
     Route: 015

REACTIONS (1)
  - Meningioma [Not Recovered/Not Resolved]

NARRATIVE: CASE EVENT DATE: 20140101
